FAERS Safety Report 21725614 (Version 1)
Quarter: 2022Q4

REPORT INFORMATION
  Report Type: Other
  Country: IT (occurrence: IT)
  Receive Date: 20221214
  Receipt Date: 20221214
  Transmission Date: 20230113
  Serious: Yes (Other)
  Sender: FDA-Public Use
  Company Number: IT-BoehringerIngelheim-2022-BI-206722

PATIENT
  Age: 45 Year
  Sex: Male

DRUGS (2)
  1. ALTEPLASE [Suspect]
     Active Substance: ALTEPLASE
     Indication: Ischaemic stroke
     Dosage: 0.9 MG/KG, AS A CONTINUOUS INFUSION OVER 60 MIN,
     Route: 042
  2. ALTEPLASE [Suspect]
     Active Substance: ALTEPLASE
     Dosage: WITH 10% OF THE TOTAL DOSE ADMINISTERED AS A BOLUS.
     Route: 042

REACTIONS (3)
  - Splenic rupture [Recovered/Resolved]
  - Splenic haematoma [Recovered/Resolved]
  - Haemoperitoneum [Recovered/Resolved]
